FAERS Safety Report 4852884-0 (Version None)
Quarter: 2005Q4

REPORT INFORMATION
  Report Type: 
  Country: None (occurrence: None)
  Receive Date: 20051212
  Receipt Date: 20051130
  Transmission Date: 20060501
  Serious: Yes (Death, Hospitalization)
  Sender: FDA-Public Use
  Company Number: A108091

PATIENT
  Age: 42 Year
  Sex: Male

DRUGS (1)
  1. ZOLOFT [Suspect]
     Indication: DEPRESSION
     Dosage: 100 MG (50 MG, 2 IN 1 D), ORAL
     Route: 048
     Dates: start: 20001101

REACTIONS (2)
  - LEUKAEMIA [None]
  - MALIGNANT NEOPLASM PROGRESSION [None]
